FAERS Safety Report 4740614-2 (Version None)
Quarter: 2005Q3

REPORT INFORMATION
  Report Type: 
  Country: None (occurrence: None)
  Receive Date: 20050729
  Receipt Date: 20050519
  Transmission Date: 20060218
  Serious: Yes (Hospitalization)
  Sender: FDA-Public Use
  Company Number: US-2005-008301

PATIENT
  Age: 62 Year
  Sex: Female
  Weight: 63.5 kg

DRUGS (3)
  1. MAGNEVIST [Suspect]
     Indication: ARTERIOGRAM CAROTID
     Dosage: SEE IMAGE
     Route: 042
     Dates: start: 20040514, end: 20040514
  2. MAGNEVIST [Suspect]
     Indication: ARTERIOGRAM CAROTID
     Dosage: SEE IMAGE
     Route: 042
     Dates: start: 20050514, end: 20040514
  3. MAGNEVIST [Suspect]

REACTIONS (4)
  - CHEST DISCOMFORT [None]
  - MUSCULOSKELETAL DISCOMFORT [None]
  - THROAT IRRITATION [None]
  - TONGUE DISORDER [None]
